FAERS Safety Report 8972564 (Version 2)
Quarter: 2013Q1

REPORT INFORMATION
  Report Type: Spontaneous
  Country: US (occurrence: US)
  Receive Date: 20121219
  Receipt Date: 20130325
  Transmission Date: 20140127
  Serious: Yes (Hospitalization)
  Sender: FDA-Public Use
  Company Number: US-BAYER-2012-131682

PATIENT
  Age: 23 Year
  Sex: Female
  Weight: 65.76 kg

DRUGS (19)
  1. YASMIN [Suspect]
     Indication: MENSTRUAL CYCLE MANAGEMENT
     Dosage: UNK
     Dates: start: 200506, end: 200606
  2. YASMIN [Suspect]
     Indication: MENORRHAGIA
     Dosage: UNK
     Dates: start: 200608, end: 201001
  3. YASMIN [Suspect]
     Indication: DYSMENORRHOEA
  4. OCELLA [Suspect]
     Indication: MENSTRUAL CYCLE MANAGEMENT
     Dosage: UNK
     Dates: start: 200506, end: 200606
  5. OCELLA [Suspect]
     Indication: MENORRHAGIA
     Dosage: UNK
     Dates: start: 200608, end: 201001
  6. OCELLA [Suspect]
     Indication: DYSMENORRHOEA
  7. YAZ [Suspect]
     Indication: MENSTRUAL CYCLE MANAGEMENT
     Dosage: UNK
     Dates: start: 200506, end: 200606
  8. YAZ [Suspect]
     Indication: MENORRHAGIA
     Dosage: UNK
     Dates: start: 200608, end: 201001
  9. YAZ [Suspect]
     Indication: DYSMENORRHOEA
  10. EFFEXOR [Concomitant]
     Indication: ANXIETY
     Dosage: UNK
     Dates: start: 2010, end: 2011
  11. ATIVAN [Concomitant]
  12. SINGULAIR [Concomitant]
  13. ADVIL [Concomitant]
     Indication: HEADACHE
     Dosage: AS NEEDED
  14. ADVIL [Concomitant]
     Indication: PAIN
  15. ALEVE [Concomitant]
  16. MOTRIN [Concomitant]
     Dosage: AS NEEDED
  17. VYVANSE [Concomitant]
     Indication: ATTENTION DEFICIT/HYPERACTIVITY DISORDER
     Dosage: UNK
     Dates: start: 2010
  18. METHYLPREDNISOLONE [Concomitant]
     Dosage: 4 MG, UNK
  19. PROAIR HFA [Concomitant]

REACTIONS (6)
  - Deep vein thrombosis [Recovered/Resolved]
  - Injury [Recovered/Resolved]
  - Pain [None]
  - Pain [Recovered/Resolved]
  - Fear of disease [None]
  - Off label use [None]
